FAERS Safety Report 7887766-3 (Version None)
Quarter: 2011Q4

REPORT INFORMATION
  Report Type: 
  Country: None (occurrence: None)
  Receive Date: 20111101
  Receipt Date: 20111018
  Transmission Date: 20120403
  Serious: Yes (Hospitalization)
  Sender: FDA-Public Use
  Company Number: 1079358

PATIENT
  Age: 47 Year
  Sex: Male
  Weight: 58.06 kg

DRUGS (12)
  1. ASPIRIN [Concomitant]
  2. DITROPAN [Concomitant]
  3. (PANTOLOC /01263204/) [Concomitant]
  4. (COLACE) [Concomitant]
  5. AMIKACIN SULFATE [Concomitant]
  6. SENOKOT [Concomitant]
  7. VANCOMYCIN HCL [Suspect]
     Indication: PRODUCT USED FOR UNKNOWN INDICATION
     Dosage: 1.0 GRAM, 1 EVERY 12 HOURS, INTRAVENOUS (NOT OTHERWISE SPECIFIED)
     Route: 042
  8. LIORESAL [Concomitant]
  9. XANAX [Concomitant]
  10. CEFTAZIDIME [Concomitant]
  11. DALMANE [Concomitant]
  12. (DOMPERIDONE) [Concomitant]

REACTIONS (4)
  - CONDITION AGGRAVATED [None]
  - ABDOMINAL DISTENSION [None]
  - MUSCLE SPASMS [None]
  - PHANTOM PAIN [None]
